FAERS Safety Report 9174955 (Version 1)
Quarter: 2013Q1

REPORT INFORMATION
  Report Type: Spontaneous
  Country: US (occurrence: US)
  Receive Date: 20130320
  Receipt Date: 20130320
  Transmission Date: 20140127
  Serious: No
  Sender: FDA-Public Use
  Company Number: US-TARO-2012P1068300

PATIENT
  Age: 64 Year
  Sex: Male
  Weight: 83.92 kg

DRUGS (4)
  1. FLUOROURACIL [Suspect]
     Indication: HYPERKERATOSIS
  2. FLUOROURACIL [Suspect]
     Indication: HYPERKERATOSIS
     Route: 061
     Dates: start: 201211, end: 20121219
  3. MULTI VITAMINS [Concomitant]
  4. FISH OIL [Concomitant]

REACTIONS (4)
  - Hypoaesthesia [Not Recovered/Not Resolved]
  - Tenderness [Not Recovered/Not Resolved]
  - Feeling abnormal [Unknown]
  - Neuropathy peripheral [Not Recovered/Not Resolved]
